FAERS Safety Report 6768322-7 (Version None)
Quarter: 2010Q2

REPORT INFORMATION
  Report Type: 
  Country: None (occurrence: None)
  Receive Date: 20100614
  Receipt Date: 20100601
  Transmission Date: 20101027
  Serious: Yes (Hospitalization)
  Sender: FDA-Public Use
  Company Number: ES-ELI_LILLY_AND_COMPANY-ES201006001227

PATIENT
  Sex: Female
  Weight: 69 kg

DRUGS (12)
  1. FORTEO [Suspect]
     Indication: OSTEOPOROSIS
     Dosage: 20 UG, DAILY (1/D)
     Route: 058
     Dates: start: 20100311
  2. ALDACTONE [Concomitant]
     Indication: HYPERTENSION
     Dosage: 50 MG, DAILY (1/D)
     Route: 048
  3. SEGURIL [Concomitant]
     Indication: HYPERTENSION
     Dosage: 1 D/F, DAILY (1/D)
     Route: 048
  4. SINGULAIR [Concomitant]
     Indication: RESPIRATORY DISORDER
     Dosage: 10 MG, DAILY (1/D)
     Route: 048
  5. DILTIAZEM [Concomitant]
     Indication: ARRHYTHMIA
     Dosage: 120 MG, DAILY (1/D)
     Route: 048
  6. SINTROM [Concomitant]
     Indication: ARRHYTHMIA
     Dosage: DEPENDING ON HAEMATOLOGIC REPORT
     Route: 048
  7. ANEUROL [Concomitant]
     Indication: SLEEP DISORDER
     Dosage: 1 D/F, DAILY (1/D)
     Route: 048
  8. LEVOTHYROXINE SODIUM [Concomitant]
     Indication: HYPOTHYROIDISM
     Dosage: 1 D/F, DAILY (1/D)
     Route: 048
  9. MICARDIS HCT [Concomitant]
     Indication: HYPERTENSION
     Dosage: 1 D/F, DAILY (1/D)
     Route: 048
  10. TRANGOREX [Concomitant]
     Indication: ARRHYTHMIA
     Dosage: 1 D/F, DAILY (1/D)
     Route: 048
  11. FOSTER                             /00500401/ [Concomitant]
     Indication: RESPIRATORY DISORDER
     Dosage: 2 PUFF, UNK
     Route: 065
  12. DIGOXIN [Concomitant]
     Indication: ARRHYTHMIA
     Dosage: 1 D/F, DAILY (1/D)
     Route: 048

REACTIONS (2)
  - ARRHYTHMIA [None]
  - INAPPROPRIATE SCHEDULE OF DRUG ADMINISTRATION [None]
